FAERS Safety Report 12626496 (Version 1)
Quarter: 2016Q3

REPORT INFORMATION
  Report Type: Spontaneous
  Country: US (occurrence: US)
  Receive Date: 20160805
  Receipt Date: 20160805
  Transmission Date: 20161109
  Serious: No
  Sender: FDA-Public Use
  Company Number: US-PFIZER INC-2016349576

PATIENT
  Age: 14 Year
  Sex: Male
  Weight: 59 kg

DRUGS (2)
  1. ADVIL [Suspect]
     Active Substance: IBUPROFEN
     Indication: OROPHARYNGEAL PAIN
     Dosage: 1 DF, UNK
     Route: 048
     Dates: start: 20160714, end: 20160715
  2. HUMALOG [Concomitant]
     Active Substance: INSULIN LISPRO
     Indication: TYPE 1 DIABETES MELLITUS
     Dosage: ^INSULIN PUMP INFUSED INTO THE BODY 24 HRS IN A DAY, 7 DAYS A WEEK, 365 DAYS A YEAR^
     Dates: start: 20130801

REACTIONS (3)
  - Burning sensation [Unknown]
  - Pain [Unknown]
  - Wrong drug administered [Unknown]

NARRATIVE: CASE EVENT DATE: 20160714
